FAERS Safety Report 23742483 (Version 2)
Quarter: 2024Q2

REPORT INFORMATION
  Report Type: Spontaneous
  Country: CN (occurrence: CN)
  Receive Date: 20240415
  Receipt Date: 20240418
  Transmission Date: 20240716
  Serious: Yes (Hospitalization)
  Sender: FDA-Public Use
  Company Number: None

PATIENT
  Age: 87 Year
  Sex: Male
  Weight: 65 kg

DRUGS (1)
  1. OXCARBAZEPINE [Suspect]
     Active Substance: OXCARBAZEPINE
     Indication: Epilepsy
     Dosage: 0.300 G, BID
     Route: 048
     Dates: start: 20240328, end: 20240402

REACTIONS (14)
  - Heart rate decreased [Recovering/Resolving]
  - Chest discomfort [Recovering/Resolving]
  - Blood pressure decreased [Recovering/Resolving]
  - Dysphoria [Recovering/Resolving]
  - Muscle spasms [Recovering/Resolving]
  - Seizure [Recovering/Resolving]
  - Nodal rhythm [Recovering/Resolving]
  - Supraventricular extrasystoles [Recovering/Resolving]
  - QRS axis abnormal [Recovering/Resolving]
  - Electrocardiogram ST segment depression [Recovering/Resolving]
  - Fibrin D dimer increased [Recovering/Resolving]
  - Blood thyroid stimulating hormone increased [Recovering/Resolving]
  - Blood creatine phosphokinase increased [Recovering/Resolving]
  - Myoglobin blood increased [Recovering/Resolving]

NARRATIVE: CASE EVENT DATE: 20240401
